FAERS Safety Report 6151680-4 (Version None)
Quarter: 2009Q2

REPORT INFORMATION
  Report Type: 
  Country: None (occurrence: None)
  Receive Date: 20090410
  Receipt Date: 20090406
  Transmission Date: 20091009
  Serious: Yes (Hospitalization)
  Sender: FDA-Public Use
  Company Number: US-JNJFOC-20090402059

PATIENT
  Sex: Female
  Weight: 54.43 kg

DRUGS (4)
  1. RISPERIDONE [Suspect]
     Route: 048
  2. RISPERIDONE [Suspect]
     Indication: SCHIZOPHRENIA
     Route: 048
  3. TRAZODONE HCL [Concomitant]
     Indication: DEPRESSION
     Route: 048
  4. ZYRTEC [Concomitant]
     Indication: HYPERSENSITIVITY
     Route: 048

REACTIONS (5)
  - CRYING [None]
  - HALLUCINATION [None]
  - HEADACHE [None]
  - MENTAL DISORDER [None]
  - PERFORMANCE STATUS DECREASED [None]
